FAERS Safety Report 8489068-3 (Version None)
Quarter: 2012Q2

REPORT INFORMATION
  Report Type: 
  Country: None (occurrence: None)
  Receive Date: 20120626
  Receipt Date: 20120614
  Transmission Date: 20120825
  Serious: Yes (Other)
  Sender: FDA-Public Use
  Company Number: AU-1192790

PATIENT
  Sex: Female

DRUGS (2)
  1. PROPYLENE GLYCOL [Suspect]
     Dosage: OPHTHALMIC
     Route: 047
  2. XALATAN [Concomitant]

REACTIONS (1)
  - DIPLOPIA [None]
